FAERS Safety Report 15699110 (Version 1)
Quarter: 2018Q4

REPORT INFORMATION
  Report Type: Spontaneous
  Country: US (occurrence: US)
  Receive Date: 20181207
  Receipt Date: 20181207
  Transmission Date: 20190205
  Serious: Yes (Death, Hospitalization)
  Sender: FDA-Public Use
  Company Number: US-BRAINTREE LABORATORIES-180604

PATIENT
  Age: 66 Year
  Sex: Female
  Weight: 83.46 kg

DRUGS (1)
  1. SUPREP BOWEL PREP [Suspect]
     Active Substance: MAGNESIUM SULFATE\POTASSIUM SULFATE\SODIUM SULFATE
     Indication: COLONOSCOPY
     Dosage: 1 X 6 OZ. BOTTLE
     Route: 048
     Dates: start: 20181023, end: 20181023

REACTIONS (9)
  - Syncope [None]
  - Diverticulum intestinal [None]
  - Uterine leiomyoma [None]
  - Hypotension [None]
  - Chills [None]
  - Arteriosclerosis [None]
  - Pyrexia [None]
  - Cardiac hypertrophy [None]
  - Urinary retention [None]

NARRATIVE: CASE EVENT DATE: 20181003
